FAERS Safety Report 11292082 (Version 2)
Quarter: 2015Q3

REPORT INFORMATION
  Report Type: Spontaneous
  Country: US (occurrence: US)
  Receive Date: 20150722
  Receipt Date: 20150828
  Transmission Date: 20151125
  Serious: Yes (Hospitalization)
  Sender: FDA-Public Use
  Company Number: US-HORIZON-RAV-0044-2015

PATIENT
  Age: 5 Year
  Sex: Male

DRUGS (2)
  1. RAVICTI [Suspect]
     Active Substance: GLYCEROL PHENYLBUTYRATE
     Indication: ARGININOSUCCINATE SYNTHETASE DEFICIENCY
     Dosage: ALTERNATING WITH 3.5 ML BID
  2. PEDIASURE [Concomitant]
     Active Substance: VITAMINS
     Dosage: DECREASED FROM 240ML OVER 24 HOURS TO 180 ML OVER 24 HOURS

REACTIONS (2)
  - Ammonia increased [Recovered/Resolved]
  - Off label use [Unknown]

NARRATIVE: CASE EVENT DATE: 20150701
